FAERS Safety Report 5125071-9 (Version None)
Quarter: 2006Q4

REPORT INFORMATION
  Report Type: 
  Country: None (occurrence: None)
  Receive Date: 20061010
  Receipt Date: 20061010
  Transmission Date: 20070319
  Serious: No
  Sender: FDA-Public Use
  Company Number: None

PATIENT
  Sex: Male
  Weight: 98.4306 kg

DRUGS (1)
  1. ZETIA [Suspect]
     Indication: HIGH DENSITY LIPOPROTEIN DECREASED
     Dosage: 10 MG DAILY PO
     Route: 048
     Dates: start: 20060919, end: 20061007

REACTIONS (2)
  - RASH [None]
  - URTICARIA [None]
